FAERS Safety Report 8228448-8 (Version None)
Quarter: 2012Q1

REPORT INFORMATION
  Report Type: 
  Country: None (occurrence: None)
  Receive Date: 20120322
  Receipt Date: 20110715
  Transmission Date: 20120608
  Serious: Yes (Other)
  Sender: FDA-Public Use
  Company Number: US-BRISTOL-MYERS SQUIBB COMPANY-15854540

PATIENT
  Age: 45 Year
  Sex: Female

DRUGS (4)
  1. ERBITUX [Suspect]
     Indication: PSEUDOMYXOMA PERITONEI
     Dosage: 153.3,153.5,U58.11,276.51 EVERY 2WEEKS,26WKS CYCLE
     Route: 042
     Dates: start: 20110623
  2. ERBITUX [Suspect]
     Indication: COLON CANCER
     Dosage: 153.3,153.5,U58.11,276.51 EVERY 2WEEKS,26WKS CYCLE
     Route: 042
     Dates: start: 20110623
  3. BENADRYL [Concomitant]
     Indication: PREMEDICATION
     Route: 042
  4. ALOXI [Concomitant]
     Indication: PREMEDICATION
     Route: 042

REACTIONS (4)
  - CHEST DISCOMFORT [None]
  - FLUSHING [None]
  - ERYTHEMA [None]
  - DYSPNOEA [None]
